FAERS Safety Report 4332662-1 (Version None)
Quarter: 2004Q1

REPORT INFORMATION
  Report Type: 
  Country: None (occurrence: None)
  Receive Date: 20040330
  Receipt Date: 20040323
  Transmission Date: 20041129
  Serious: Yes (Death)
  Sender: FDA-Public Use
  Company Number: BRO-007213

PATIENT
  Age: 56 Year
  Sex: Female

DRUGS (2)
  1. IOPAMIDOL [Suspect]
     Indication: COMPUTERISED TOMOGRAM
     Dosage: 80 ML
     Route: 042
     Dates: start: 20040221, end: 20040221
  2. IOPAMIRON 370 [Suspect]
     Indication: HAEMOPTYSIS

REACTIONS (6)
  - BLOOD PRESSURE IMMEASURABLE [None]
  - CIRCULATORY COLLAPSE [None]
  - HAEMATEMESIS [None]
  - MALAISE [None]
  - NAUSEA [None]
  - PULSE ABSENT [None]
